FAERS Safety Report 12673464 (Version 2)
Quarter: 2016Q3

REPORT INFORMATION
  Report Type: Spontaneous
  Country: JP (occurrence: JP)
  Receive Date: 20160822
  Receipt Date: 20160906
  Transmission Date: 20161109
  Serious: Yes (Other)
  Sender: FDA-Public Use
  Company Number: JP-JNJFOC-20160816620

PATIENT
  Age: 91 Year
  Sex: Male

DRUGS (8)
  1. REMINYL [Suspect]
     Active Substance: GALANTAMINE
     Indication: DEMENTIA ALZHEIMER^S TYPE
     Dosage: FOR 4 YEARS
     Route: 048
     Dates: start: 20121211, end: 20160816
  2. LUPRAC [Concomitant]
     Active Substance: TORSEMIDE
     Route: 048
  3. FLIVAS [Concomitant]
     Active Substance: NAFTOPIDIL
     Route: 048
  4. WARFARIN [Concomitant]
     Active Substance: WARFARIN
     Route: 048
  5. ZYLORIC [Concomitant]
     Active Substance: ALLOPURINOL
     Route: 048
  6. SELBEX [Concomitant]
     Active Substance: TEPRENONE
     Route: 048
  7. NEXIUM [Concomitant]
     Active Substance: ESOMEPRAZOLE MAGNESIUM
     Route: 048
  8. ETODOLAC. [Concomitant]
     Active Substance: ETODOLAC
     Route: 048

REACTIONS (1)
  - Arrhythmia [Recovered/Resolved]

NARRATIVE: CASE EVENT DATE: 20160816
